FAERS Safety Report 5299508-9 (Version None)
Quarter: 2007Q2

REPORT INFORMATION
  Report Type: 
  Country: None (occurrence: None)
  Receive Date: 20070417
  Receipt Date: 20070312
  Transmission Date: 20071010
  Serious: Yes (Hospitalization)
  Sender: FDA-Public Use
  Company Number: US-SANOFI-SYNTHELABO-A03200702185

PATIENT
  Sex: Female

DRUGS (6)
  1. NITROGLYCERIN [Concomitant]
     Dosage: UNK
     Route: 065
  2. LOPRESSOR [Concomitant]
     Dosage: UNK
     Route: 065
  3. COUMADIN [Concomitant]
     Dosage: UNK
     Route: 065
  4. AMBIEN [Suspect]
     Indication: INSOMNIA
     Route: 048
     Dates: start: 19980120, end: 19980123
  5. AMBIEN [Suspect]
     Route: 048
     Dates: start: 19980218, end: 19980222
  6. AMBIEN [Suspect]
     Route: 048
     Dates: start: 19980801, end: 19980801

REACTIONS (9)
  - AMNESIA [None]
  - ANGINA PECTORIS [None]
  - BACK PAIN [None]
  - CHEST PAIN [None]
  - DYSPNOEA [None]
  - EATING DISORDER [None]
  - FALL [None]
  - SLEEP WALKING [None]
  - WEIGHT INCREASED [None]
